FAERS Safety Report 26171312 (Version 1)
Quarter: 2025Q4

REPORT INFORMATION
  Report Type: Spontaneous
  Country: MX (occurrence: MX)
  Receive Date: 20251217
  Receipt Date: 20251217
  Transmission Date: 20260118
  Serious: Yes (Death, Life-Threatening, Hospitalization)
  Sender: GALPHARM INTERNATIONAL
  Company Number: MX-MLMSERVICE-20251205-PI741347-00029-1

PATIENT
  Age: 53 Year
  Sex: Female

DRUGS (2)
  1. ACETAMINOPHEN [Suspect]
     Active Substance: ACETAMINOPHEN
     Indication: Product used for unknown indication
     Dosage: UNKNOWN AMOUNT
     Route: 048
  2. CLONAZEPAM [Suspect]
     Active Substance: CLONAZEPAM
     Dosage: UNKNOWN AMOUNT
     Route: 048

REACTIONS (7)
  - Vomiting [Fatal]
  - Metabolic acidosis [Fatal]
  - Hepatotoxicity [Fatal]
  - Nervous system disorder [Fatal]
  - Gastric haemorrhage [Fatal]
  - Shock [Fatal]
  - Overdose [Fatal]
